FAERS Safety Report 6102900-3 (Version None)
Quarter: 2009Q1

REPORT INFORMATION
  Report Type: 
  Country: None (occurrence: None)
  Receive Date: 20090303
  Receipt Date: 20090303
  Transmission Date: 20090719
  Serious: No
  Sender: FDA-Public Use
  Company Number: None

PATIENT
  Age: 36 Year
  Sex: Female
  Weight: 106.5953 kg

DRUGS (3)
  1. SUDAFED 12 HOUR [Suspect]
     Indication: PAIN
     Dosage: 2 CAPLETS EVERY 4 HOURS PO
     Route: 048
     Dates: start: 20090202, end: 20090205
  2. SUDAFED 12 HOUR [Suspect]
     Indication: RHINORRHOEA
     Dosage: 2 CAPLETS EVERY 4 HOURS PO
     Route: 048
     Dates: start: 20090202, end: 20090205
  3. SUDAFED 12 HOUR [Suspect]
     Indication: SINUS HEADACHE
     Dosage: 2 CAPLETS EVERY 4 HOURS PO
     Route: 048
     Dates: start: 20090202, end: 20090205

REACTIONS (1)
  - DRUG SCREEN POSITIVE [None]
